FAERS Safety Report 4964912-2 (Version None)
Quarter: 2006Q2

REPORT INFORMATION
  Report Type: 
  Country: None (occurrence: None)
  Receive Date: 20060403
  Receipt Date: 20060307
  Transmission Date: 20061013
  Serious: Yes (Life-Threatening)
  Sender: FDA-Public Use
  Company Number: 223576

PATIENT
  Age: 65 Year
  Sex: Male
  Weight: 71 kg

DRUGS (6)
  1. MABTHERA [Suspect]
     Indication: DIFFUSE LARGE B-CELL LYMPHOMA
     Dates: start: 20060202, end: 20060202
  2. ALLOPURINOL [Concomitant]
  3. CIPROFLOXACIN [Concomitant]
  4. DIACORT (DIFLORASONE DIACETATE) [Concomitant]
  5. AMPHO MORONAL (AMPHOTERICIN B) [Concomitant]
  6. LORAZEPAM [Concomitant]

REACTIONS (1)
  - ANAPHYLACTIC REACTION [None]
